FAERS Safety Report 6720002-X (Version None)
Quarter: 2010Q2

REPORT INFORMATION
  Report Type: 
  Country: None (occurrence: None)
  Receive Date: 20100505
  Receipt Date: 20100427
  Transmission Date: 20101027
  Serious: Yes (Hospitalization)
  Sender: FDA-Public Use
  Company Number: 1000013500

PATIENT
  Age: 54 Year
  Sex: Male

DRUGS (6)
  1. NEBIVOLOL HCL [Suspect]
     Indication: HYPERTENSION
     Dosage: ORAL
     Route: 048
     Dates: start: 20090204
  2. COLCHIMAX [Suspect]
     Indication: GOUT
     Dosage: ORAL
     Route: 048
     Dates: start: 20090826, end: 20090831
  3. VOLTAREN [Suspect]
     Indication: PAIN
     Dosage: ORAL
     Route: 048
     Dates: start: 20090826
  4. ADVAGRAF [Suspect]
     Indication: RENAL TRANSPLANT
     Dosage: ORAL
     Route: 048
  5. CELLCEPT [Suspect]
     Indication: RENAL TRANSPLANT
     Dosage: ORAL
     Route: 048
  6. FUROSEMIDE [Suspect]
     Indication: HYPERTENSION
     Dosage: ORAL
     Route: 048
     Dates: start: 20090721, end: 20090901

REACTIONS (2)
  - CONDITION AGGRAVATED [None]
  - RENAL FAILURE [None]
